FAERS Safety Report 11264829 (Version 1)
Quarter: 2015Q3

REPORT INFORMATION
  Report Type: Spontaneous
  Country: US (occurrence: None)
  Receive Date: 20150710
  Receipt Date: 20150710
  Transmission Date: 20151125
  Serious: No
  Sender: FDA-Public Use
  Company Number: None

PATIENT
  Age: 53 Year
  Sex: Female

DRUGS (1)
  1. HARVONI [Suspect]
     Active Substance: LEDIPASVIR\SOFOSBUVIR
     Indication: HEPATITIS C
     Dosage: 90/400  ONE DAILY  BY MOUTH?APPROX 4 WEEKS NOW
     Route: 048

REACTIONS (3)
  - Photophobia [None]
  - Burning sensation [None]
  - Visual impairment [None]

NARRATIVE: CASE EVENT DATE: 20150709
